FAERS Safety Report 9278454 (Version 2)
Quarter: 2013Q3

REPORT INFORMATION
  Report Type: Spontaneous
  Country: US (occurrence: US)
  Receive Date: 20130508
  Receipt Date: 20130730
  Transmission Date: 20140515
  Serious: No
  Sender: FDA-Public Use
  Company Number: US-009507513-1305USA001937

PATIENT
  Sex: 0

DRUGS (1)
  1. ASMANEX TWISTHALER [Suspect]
     Dosage: 1 INHALATION DAILY
     Route: 048

REACTIONS (3)
  - Drug dose omission [Unknown]
  - Product quality issue [Unknown]
  - No adverse event [Unknown]
